FAERS Safety Report 17227641 (Version 1)
Quarter: 2020Q1

REPORT INFORMATION
  Report Type: Other
  Country: CA (occurrence: CA)
  Receive Date: 20200103
  Receipt Date: 20200103
  Transmission Date: 20200409
  Serious: Yes (Disabling)
  Sender: FDA-Public Use
  Company Number: CA-EMCURE PHARMACEUTICALS LTD-2019-EPL-1246

PATIENT
  Age: 56 Year
  Sex: Female
  Weight: 89 kg

DRUGS (1)
  1. RIZATRIPTAN. [Suspect]
     Active Substance: RIZATRIPTAN
     Indication: MIGRAINE
     Dosage: 20 MILLIGRAM, PRN
     Route: 065

REACTIONS (4)
  - Nausea [Recovered/Resolved]
  - Product substitution issue [Recovered/Resolved]
  - Migraine [Recovered/Resolved]
  - Migraine with aura [Recovered/Resolved]
